FAERS Safety Report 24707713 (Version 1)
Quarter: 2024Q4

REPORT INFORMATION
  Report Type: Spontaneous
  Country: US (occurrence: US)
  Receive Date: 20241206
  Receipt Date: 20241206
  Transmission Date: 20250115
  Serious: No
  Sender: PFIZER
  Company Number: US-PFIZER INC-PV202400159251

PATIENT
  Sex: Male

DRUGS (2)
  1. CAVERJECT [Interacting]
     Active Substance: ALPROSTADIL
     Dosage: UNK UNK, 1X/DAY
  2. VARDENAFIL [Interacting]
     Active Substance: VARDENAFIL HYDROCHLORIDE
     Dosage: UNK

REACTIONS (1)
  - Drug interaction [Unknown]
